FAERS Safety Report 8274905-8 (Version None)
Quarter: 2012Q1

REPORT INFORMATION
  Report Type: 
  Country: None (occurrence: None)
  Receive Date: 20120309
  Receipt Date: 20111202
  Transmission Date: 20120608
  Serious: Yes (Hospitalization)
  Sender: FDA-Public Use
  Company Number: TH-2012-00007

PATIENT
  Age: 56 Year
  Sex: Male

DRUGS (3)
  1. EGRIFTA [Suspect]
     Indication: LIPODYSTROPHY ACQUIRED
     Dosage: SUBCUTANEOUS
     Route: 058
     Dates: start: 20110301
  2. CRESTOR [Concomitant]
  3. VITAMIN D (COLECALCIFEROL) [Concomitant]

REACTIONS (7)
  - MIGRAINE [None]
  - HEADACHE [None]
  - ARTHRALGIA [None]
  - NAUSEA [None]
  - VOMITING [None]
  - VISION BLURRED [None]
  - MYALGIA [None]
